FAERS Safety Report 22305533 (Version 2)
Quarter: 2023Q2

REPORT INFORMATION
  Report Type: Spontaneous
  Country: FR (occurrence: FR)
  Receive Date: 20230510
  Receipt Date: 20230606
  Transmission Date: 20230721
  Serious: Yes (Other)
  Sender: FDA-Public Use
  Company Number: None

PATIENT
  Age: 71 Year
  Sex: Male
  Weight: 83 kg

DRUGS (15)
  1. DAPTOMYCIN [Suspect]
     Active Substance: DAPTOMYCIN
     Indication: Staphylococcal infection
     Dosage: 730 MILLIGRAM, QD
     Route: 042
     Dates: start: 20230408, end: 20230413
  2. TAZOBACTAM SODIUM [Suspect]
     Active Substance: TAZOBACTAM SODIUM
     Indication: Enterobacter infection
     Dosage: 0.75 GRAM, QD
     Route: 042
     Dates: start: 20230408, end: 20230413
  3. PIPERACILLIN [Suspect]
     Active Substance: PIPERACILLIN
     Indication: Enterobacter infection
     Dosage: 12 GRAM. QD
     Route: 042
     Dates: start: 20230408, end: 20230413
  4. ACETAMINOPHEN [Suspect]
     Active Substance: ACETAMINOPHEN
     Indication: Pain
     Dosage: ? 3G /JHOUR
     Route: 042
     Dates: end: 20230413
  5. INSULIN GLARGINE [Concomitant]
     Active Substance: INSULIN GLARGINE
  6. LEVOTHYROXINE [Concomitant]
     Active Substance: LEVOTHYROXINE
  7. PHLOROGLUCINOL DIHYDRATE [Concomitant]
     Active Substance: PHLOROGLUCINOL DIHYDRATE
  8. ASPIRIN\CLOPIDOGREL [Concomitant]
     Active Substance: ASPIRIN\CLOPIDOGREL
     Dosage: 75 MG/75 MG
  9. INSULIN NOS [Concomitant]
     Active Substance: INSULIN NOS
  10. ENOXAPARIN SODIUM [Concomitant]
     Active Substance: ENOXAPARIN SODIUM
  11. AMIODARONE [Concomitant]
     Active Substance: AMIODARONE
  12. FUROSEMIDE [Concomitant]
     Active Substance: FUROSEMIDE
  13. TRULICITY [Concomitant]
     Active Substance: DULAGLUTIDE
  14. TAMSULOSIN [Concomitant]
     Active Substance: TAMSULOSIN
  15. LIPTRUZET [Concomitant]
     Active Substance: ATORVASTATIN CALCIUM\EZETIMIBE
     Dosage: 10 MG/80 MG

REACTIONS (2)
  - Cholestasis [Recovered/Resolved]
  - Hepatic cytolysis [Recovered/Resolved]

NARRATIVE: CASE EVENT DATE: 20230412
